FAERS Safety Report 5633531-7 (Version None)
Quarter: 2008Q1

REPORT INFORMATION
  Report Type: 
  Country: None (occurrence: None)
  Receive Date: 20080221
  Receipt Date: 20080213
  Transmission Date: 20080703
  Serious: Yes (Other)
  Sender: FDA-Public Use
  Company Number: US-ELI_LILLY_AND_COMPANY-US200802003219

PATIENT
  Age: 27 Year
  Sex: Female
  Weight: 68.027 kg

DRUGS (2)
  1. CYMBALTA [Suspect]
     Indication: PANIC ATTACK
     Dosage: 30 MG, DAILY (1/D)
     Dates: start: 20060710
  2. CYMBALTA [Suspect]
     Dosage: 1 D/F, UNK
     Dates: end: 20071128

REACTIONS (9)
  - ABNORMAL DREAMS [None]
  - ANOREXIA [None]
  - DIARRHOEA [None]
  - DIZZINESS [None]
  - DRUG WITHDRAWAL SYNDROME [None]
  - FATIGUE [None]
  - MOOD SWINGS [None]
  - PARAESTHESIA [None]
  - VISION BLURRED [None]
